FAERS Safety Report 6719127-4 (Version None)
Quarter: 2010Q2

REPORT INFORMATION
  Report Type: 
  Country: None (occurrence: None)
  Receive Date: 20100507
  Receipt Date: 20100421
  Transmission Date: 20101027
  Serious: Yes (Death)
  Sender: FDA-Public Use
  Company Number: DSA_42698_2010

PATIENT
  Sex: Male
  Weight: 80.7403 kg

DRUGS (7)
  1. ATIVAN [Suspect]
     Indication: DRUG USE FOR UNKNOWN INDICATION
     Dosage: NOT THE PRESCRIBED AMOUNT
  2. OPANA [Suspect]
     Indication: DRUG USE FOR UNKNOWN INDICATION
     Dosage: NOT THE PRESCRIBED AMOUNT ORAL
     Route: 048
  3. OXYCODONE [Suspect]
     Indication: DRUG USE FOR UNKNOWN INDICATION
     Dosage: NOT THE PRESCRIBED AMOUNT
  4. HYDROCODONE BITARTRATE AND ACETAMINOPHEN (NOT SPECIFIED) [Suspect]
     Indication: DRUG USE FOR UNKNOWN INDICATION
     Dosage: NOT THE PRESCRIBED AMOUNT
  5. DIHYDROCODEINE BITARTRATE INJ [Suspect]
     Indication: DRUG USE FOR UNKNOWN INDICATION
     Dosage: NOT THE PRESCRIBED AMOUNT
  6. CITALOPRAM [Suspect]
     Indication: DRUG USE FOR UNKNOWN INDICATION
     Dosage: NOT THE PRESCRIBED AMOUNT
  7. 9-TETRAHYDROCANNABINOL [Suspect]
     Indication: DRUG USE FOR UNKNOWN INDICATION
     Dosage: NOT THE PRESCRIBED AMOUNT

REACTIONS (8)
  - AORTIC ARTERIOSCLEROSIS [None]
  - CARDIOMEGALY [None]
  - COMPLETED SUICIDE [None]
  - CORONARY ARTERY OCCLUSION [None]
  - DRUG TOXICITY [None]
  - PERICARDIAL EFFUSION [None]
  - PULMONARY CONGESTION [None]
  - PULMONARY OEDEMA [None]
